FAERS Safety Report 23326433 (Version 1)
Quarter: 2023Q4

REPORT INFORMATION
  Report Type: Spontaneous
  Country: US (occurrence: US)
  Receive Date: 20231221
  Receipt Date: 20231221
  Transmission Date: 20240110
  Serious: Yes (Death, Other)
  Sender: FDA-Public Use
  Company Number: US-INCYTE CORPORATION-2023IN012605

PATIENT

DRUGS (2)
  1. PEMAZYRE [Suspect]
     Active Substance: PEMIGATINIB
     Indication: Malignant lymphoid neoplasm
     Dosage: 13.5 MILLIGRAM
     Route: 048
     Dates: start: 20230707
  2. PEMAZYRE [Suspect]
     Active Substance: PEMIGATINIB
     Dosage: 4.5 MILLIGRAM
     Route: 065

REACTIONS (2)
  - Death [Fatal]
  - Off label use [Unknown]
